FAERS Safety Report 10341618 (Version 2)
Quarter: 2014Q3

REPORT INFORMATION
  Report Type: Spontaneous
  Country: CA (occurrence: CA)
  Receive Date: 20140725
  Receipt Date: 20140725
  Transmission Date: 20150326
  Serious: Yes (Hospitalization, Other)
  Sender: FDA-Public Use
  Company Number: PHHY2014CA082383

PATIENT
  Age: 11 Year
  Sex: Male

DRUGS (5)
  1. CALCIUM + VITAMIN D                /01483701/ [Concomitant]
     Active Substance: CALCIUM\VITAMIN D
     Dosage: UNK UKN, UNK
  2. ILARIS [Suspect]
     Active Substance: CANAKINUMAB
     Indication: JUVENILE IDIOPATHIC ARTHRITIS
     Dosage: 4 MG/KG, QMO
     Route: 058
     Dates: start: 201006, end: 201212
  3. IBUPROFEN. [Concomitant]
     Active Substance: IBUPROFEN
     Dosage: 400 MG, QD
  4. PREDNISONE. [Concomitant]
     Active Substance: PREDNISONE
     Dosage: 5 MG, QD
  5. TOCILIZUMAB [Concomitant]
     Active Substance: TOCILIZUMAB
     Dosage: 12 MG/KG, EVERY 2 WEEKS
     Route: 042
     Dates: start: 201306

REACTIONS (14)
  - Malaise [Unknown]
  - Pleural disorder [Recovered/Resolved with Sequelae]
  - Pleural fibrosis [Recovered/Resolved with Sequelae]
  - Interstitial lung disease [Recovered/Resolved with Sequelae]
  - Chest pain [Recovered/Resolved with Sequelae]
  - Restrictive pulmonary disease [Recovered/Resolved with Sequelae]
  - Fatigue [Unknown]
  - Cough [Unknown]
  - Back pain [Recovered/Resolved with Sequelae]
  - Pleural adhesion [Recovered/Resolved with Sequelae]
  - Arthralgia [Unknown]
  - Pleural effusion [Unknown]
  - Chest discomfort [Unknown]
  - Bronchitis [Recovered/Resolved with Sequelae]

NARRATIVE: CASE EVENT DATE: 201310
